FAERS Safety Report 6368064-6 (Version None)
Quarter: 2009Q3

REPORT INFORMATION
  Report Type: 
  Country: None (occurrence: None)
  Receive Date: 20090922
  Receipt Date: 20090911
  Transmission Date: 20100115
  Serious: Yes (Death, Other)
  Sender: FDA-Public Use
  Company Number: BR-ROCHE-656351

PATIENT
  Age: 39 Year
  Sex: Male

DRUGS (1)
  1. TAMIFLU [Suspect]
     Route: 065
     Dates: start: 20090801, end: 20090801

REACTIONS (5)
  - CARDIAC ARREST [None]
  - INFECTION [None]
  - MULTI-ORGAN FAILURE [None]
  - PNEUMONIA BACTERIAL [None]
  - RENAL FAILURE [None]
